FAERS Safety Report 6114836-2 (Version None)
Quarter: 2009Q1

REPORT INFORMATION
  Report Type: 
  Country: None (occurrence: None)
  Receive Date: 20090313
  Receipt Date: 20090302
  Transmission Date: 20090719
  Serious: Yes (Life-Threatening)
  Sender: FDA-Public Use
  Company Number: GB-PFIZER INC-2009179972

PATIENT

DRUGS (6)
  1. CHAMPIX [Suspect]
     Indication: SMOKING CESSATION THERAPY
     Route: 048
     Dates: start: 20081120, end: 20090119
  2. HYOSCINE BUTYLBROMIDE [Concomitant]
     Indication: NAUSEA
     Dosage: 20 MG, 4X/DAY
     Route: 048
     Dates: start: 20081111, end: 20081112
  3. HYOSCINE BUTYLBROMIDE [Concomitant]
     Indication: VOMITING
  4. IBUPROFEN [Concomitant]
     Indication: HEADACHE
     Dosage: 200 MG, UNK
     Route: 048
     Dates: start: 20080811, end: 20080813
  5. PROCHLORPERAZINE [Concomitant]
     Indication: NAUSEA
     Dosage: 10 MG, 3X/DAY
     Route: 048
     Dates: start: 20081111, end: 20081112
  6. PROCHLORPERAZINE [Concomitant]
     Indication: VOMITING

REACTIONS (6)
  - CHEST PAIN [None]
  - FATIGUE [None]
  - PAIN IN EXTREMITY [None]
  - PALPITATIONS [None]
  - PARAESTHESIA [None]
  - PRURITUS [None]
